FAERS Safety Report 5866118-1 (Version None)
Quarter: 2008Q3

REPORT INFORMATION
  Report Type: 
  Country: None (occurrence: None)
  Receive Date: 20080829
  Receipt Date: 20080820
  Transmission Date: 20090109
  Serious: Yes (Other)
  Sender: FDA-Public Use
  Company Number: CN-PFIZER INC-2008068006

PATIENT
  Age: 40 Year
  Sex: Male

DRUGS (2)
  1. MEDROL [Suspect]
     Indication: RHEUMATOID ARTHRITIS
     Route: 048
     Dates: start: 20080101, end: 20080801
  2. MEDROL [Suspect]
     Indication: ANKYLOSING SPONDYLITIS

REACTIONS (1)
  - HERPES ZOSTER OPHTHALMIC [None]
